FAERS Safety Report 10316729 (Version 2)
Quarter: 2014Q3

REPORT INFORMATION
  Report Type: Other
  Country: US (occurrence: US)
  Receive Date: 20140719
  Receipt Date: 20140909
  Transmission Date: 20150326
  Serious: Yes (Death, Other)
  Sender: FDA-Public Use
  Company Number: US-GSKPPD-2014GSK006534

PATIENT
  Age: 64 Year
  Sex: Female

DRUGS (4)
  1. NIFEDIPINE. [Concomitant]
     Active Substance: NIFEDIPINE
  2. AVANDIA [Suspect]
     Active Substance: ROSIGLITAZONE MALEATE
     Indication: DIABETES MELLITUS
     Dosage: DATES OF AVANDIA USE COULD NOT BE CONFIRMED IN RECORDS REVIEWED.
     Route: 048
  3. GLYBURIDE HCL [Concomitant]
  4. UNIVASC [Concomitant]
     Active Substance: MOEXIPRIL HYDROCHLORIDE

REACTIONS (2)
  - Cardiac failure congestive [Unknown]
  - Arteriosclerosis [Fatal]

NARRATIVE: CASE EVENT DATE: 20051217
